FAERS Safety Report 15589552 (Version 1)
Quarter: 2018Q4

REPORT INFORMATION
  Report Type: Report from Study
  Country: ES (occurrence: ES)
  Receive Date: 20181106
  Receipt Date: 20181106
  Transmission Date: 20190205
  Serious: Yes (Hospitalization)
  Sender: FDA-Public Use
  Company Number: ES-ACCORD-091127

PATIENT
  Age: 90 Year
  Sex: Female

DRUGS (7)
  1. FUROSEMIDE. [Suspect]
     Active Substance: FUROSEMIDE
     Indication: PRODUCT USED FOR UNKNOWN INDICATION
     Dosage: 1-1-0
     Route: 048
     Dates: start: 20070313
  2. ESIDREX [Interacting]
     Active Substance: HYDROCHLOROTHIAZIDE
     Dosage: 1-0-1/2
     Route: 048
     Dates: start: 20030101, end: 20170504
  3. ALLOPURINOL. [Concomitant]
     Active Substance: ALLOPURINOL
     Dosage: 1-0-0
     Route: 048
     Dates: start: 20030101
  4. OMEPRAZOLE. [Concomitant]
     Active Substance: OMEPRAZOLE
     Dosage: 1-0-0
     Route: 048
     Dates: start: 20070313
  5. SINTROM [Concomitant]
     Active Substance: ACENOCOUMAROL
     Dosage: SP
     Route: 048
     Dates: start: 20121029
  6. INSULINA NOVORAPID [Concomitant]
     Dosage: 12 UI
     Route: 058
     Dates: start: 20121029
  7. TARDYFERON [Concomitant]
     Active Substance: FERROUS SULFATE
     Dosage: 1-0-0
     Route: 048
     Dates: start: 20070313

REACTIONS (3)
  - Drug interaction [Unknown]
  - Metabolic alkalosis [Recovered/Resolved]
  - Hypokalaemia [Recovered/Resolved]

NARRATIVE: CASE EVENT DATE: 20170504
